FAERS Safety Report 8873301 (Version 1)
Quarter: 2012Q4

REPORT INFORMATION
  Report Type: 
  Country: US (occurrence: US)
  Receive Date: 20121026
  Receipt Date: 20121026
  Transmission Date: 20130627
  Serious: No
  Sender: FDA-Public Use
  Company Number: US-AMGEN-USASP2012050466

PATIENT
  Sex: Female

DRUGS (7)
  1. ENBREL [Suspect]
     Indication: PRODUCT USED FOR UNKNOWN INDICATION
     Dosage: 50 mg, qwk
     Route: 058
  2. DEXILANT [Concomitant]
     Dosage: 30 mg, Delayed release
  3. METHOTREXATE [Concomitant]
     Dosage: 2.5 mg, UNK
  4. DILANTIN                           /00017401/ [Concomitant]
     Dosage: 100 mg, UNK
  5. FOLIC ACID [Concomitant]
     Dosage: 1 mg, UNK
  6. VITAMIN D /00107901/ [Concomitant]
     Dosage: 1000 unit, UNK
  7. MOBIC [Concomitant]
     Dosage: 15 mg, UNK

REACTIONS (4)
  - Dyspepsia [Unknown]
  - Weight decreased [Unknown]
  - Contusion [Unknown]
  - White blood cell count decreased [Unknown]
